FAERS Safety Report 8230824-4 (Version None)
Quarter: 2012Q1

REPORT INFORMATION
  Report Type: 
  Country: None (occurrence: None)
  Receive Date: 20120320
  Receipt Date: 20120312
  Transmission Date: 20120608
  Serious: Yes (Death)
  Sender: FDA-Public Use
  Company Number: ABR_00388_2012

PATIENT
  Age: 24 Month
  Sex: Male
  Weight: 7 kg

DRUGS (1)
  1. ERYTHROMCINE-ES (ERYTHROCINE ER SUSPENSION) (NOT SPECIFIED) [Suspect]
     Indication: GASTROINTESTINAL MOTILITY DISORDER
     Dosage: (130 MG) (32.5 MG, 4 IN 1 D) ORAL)
     Route: 048

REACTIONS (1)
  - SUDDEN DEATH [None]
